FAERS Safety Report 8216442-2 (Version None)
Quarter: 2012Q1

REPORT INFORMATION
  Report Type: 
  Country: None (occurrence: None)
  Receive Date: 20120316
  Receipt Date: 20120315
  Transmission Date: 20120608
  Serious: Yes (Death, Other)
  Sender: FDA-Public Use
  Company Number: PHHY2012NL018212

PATIENT
  Sex: Male

DRUGS (2)
  1. ZOMETA [Suspect]
     Indication: RENAL CELL CARCINOMA
     Dosage: 4MG/100ML ONCE PER 28 DAYS
     Dates: start: 20111221
  2. ZOMETA [Suspect]
     Dosage: 4MG/100ML ONCE PER 28 DAYS
     Dates: start: 20120117

REACTIONS (3)
  - TERMINAL STATE [None]
  - NEOPLASM MALIGNANT [None]
  - NEOPLASM PROGRESSION [None]
